FAERS Safety Report 14767048 (Version 1)
Quarter: 2018Q2

REPORT INFORMATION
  Report Type: Spontaneous
  Country: FR (occurrence: FR)
  Receive Date: 20180417
  Receipt Date: 20180417
  Transmission Date: 20180711
  Serious: Yes (Hospitalization, Other)
  Sender: FDA-Public Use
  Company Number: FR-B.I. PHARMACEUTICALS,INC./RIDGEFIELD-2018-BI-019547

PATIENT
  Age: 74 Year
  Sex: Male

DRUGS (4)
  1. PRADAXA [Suspect]
     Active Substance: DABIGATRAN ETEXILATE MESYLATE
     Indication: ATRIAL FIBRILLATION
     Route: 065
  2. CANDESARTAN. [Concomitant]
     Active Substance: CANDESARTAN
     Indication: HYPERTENSION
     Dosage: STRENGTH: 16/12.5
     Route: 065
  3. AVLOCARDYL [Concomitant]
     Active Substance: PROPRANOLOL HYDROCHLORIDE
     Indication: HYPERTENSION
     Dosage: STRENGTH: 40 2/DAY
     Route: 065
  4. NICARDIPINE LP [Concomitant]
     Indication: HYPERTENSION
     Dosage: STRENGTH: 50 2/DAY
     Route: 065

REACTIONS (3)
  - Haemorrhagic transformation stroke [Unknown]
  - Peripheral artery thrombosis [Unknown]
  - Cerebrovascular accident [Recovered/Resolved]
